FAERS Safety Report 8767194 (Version 1)
Quarter: 2012Q4

REPORT INFORMATION
  Report Type: 
  Country: US (occurrence: US)
  Receive Date: 20120904
  Receipt Date: 20120904
  Transmission Date: 20130627
  Serious: Yes (Hospitalization)
  Sender: FDA-Public Use
  Company Number: US-GLAXOSMITHKLINE-A0966873A

PATIENT
  Age: 48 Year
  Sex: Male

DRUGS (1)
  1. AVANDIA [Suspect]
     Indication: DIABETES MELLITUS
     Dosage: 2MG Per day
     Route: 048
     Dates: start: 200211, end: 200711

REACTIONS (3)
  - Coronary artery disease [Not Recovered/Not Resolved]
  - Chest pain [Unknown]
  - Musculoskeletal pain [Unknown]
